FAERS Safety Report 9920066 (Version 2)
Quarter: 2015Q3

REPORT INFORMATION
  Report Type: Spontaneous
  Country: US (occurrence: US)
  Receive Date: 20140224
  Receipt Date: 20150807
  Transmission Date: 20151125
  Serious: Yes (Hospitalization, Other)
  Sender: FDA-Public Use
  Company Number: US-TEVA-463782USA

PATIENT
  Age: 66 Year
  Sex: Male

DRUGS (7)
  1. FUROSEMIDE. [Concomitant]
     Active Substance: FUROSEMIDE
     Route: 065
  2. SEVELAMER [Concomitant]
     Active Substance: SEVELAMER
     Route: 065
  3. TRIFLURIDINE. [Concomitant]
     Active Substance: TRIFLURIDINE
     Indication: OPHTHALMIC HERPES ZOSTER
     Route: 065
  4. VALACICLOVIR [Suspect]
     Active Substance: VALACYCLOVIR HYDROCHLORIDE
     Indication: OPHTHALMIC HERPES ZOSTER
     Dosage: 1000MG DAILY (PRESCRIPTION WAS FOR 7 DAYS)
     Route: 048
  5. GLIMEPIRIDE. [Concomitant]
     Active Substance: GLIMEPIRIDE
     Route: 065
  6. SIMVASTATIN. [Concomitant]
     Active Substance: SIMVASTATIN
     Route: 065
  7. METOPROLOL [Concomitant]
     Active Substance: METOPROLOL
     Route: 065

REACTIONS (6)
  - Depression [Recovering/Resolving]
  - Disturbance in attention [Recovering/Resolving]
  - Hallucination [Recovering/Resolving]
  - Insomnia [Recovering/Resolving]
  - Photosensitivity reaction [Recovering/Resolving]
  - Neurotoxicity [Recovering/Resolving]
